FAERS Safety Report 5010726-7 (Version None)
Quarter: 2006Q2

REPORT INFORMATION
  Report Type: 
  Country: None (occurrence: None)
  Receive Date: 20060525
  Receipt Date: 20060518
  Transmission Date: 20061013
  Serious: Yes (Life-Threatening)
  Sender: FDA-Public Use
  Company Number: FR-AVENTIS-200611864FR

PATIENT
  Age: 88 Year
  Sex: Female

DRUGS (4)
  1. LASILIX [Suspect]
     Route: 042
     Dates: start: 20050728
  2. LASILIX [Suspect]
     Route: 042
  3. LASILIX [Suspect]
     Route: 042
     Dates: end: 20050802
  4. CORDARONE [Suspect]
     Route: 048
     Dates: start: 20050728, end: 20050802

REACTIONS (2)
  - BLOOD POTASSIUM DECREASED [None]
  - TORSADE DE POINTES [None]
